FAERS Safety Report 14295254 (Version 2)
Quarter: 2018Q1

REPORT INFORMATION
  Report Type: Report from Study
  Country: JP (occurrence: JP)
  Receive Date: 20171218
  Receipt Date: 20180215
  Transmission Date: 20180509
  Serious: Yes (Hospitalization)
  Sender: FDA-Public Use
  Company Number: JP-BAUSCH-BL-2017-034036

PATIENT
  Age: 65 Year
  Sex: Male
  Weight: 51 kg

DRUGS (1)
  1. CLENAFIN TOPICAL SOLUTION 10% FOR NAIL (EFINACONAZOLE) [Suspect]
     Active Substance: EFINACONAZOLE
     Indication: DERMATOPHYTOSIS OF NAIL
     Route: 061
     Dates: start: 20170613

REACTIONS (1)
  - Hypopharyngeal cancer [Not Recovered/Not Resolved]

NARRATIVE: CASE EVENT DATE: 20171013
